FAERS Safety Report 9353457 (Version 2)
Quarter: 2025Q3

REPORT INFORMATION
  Report Type: Spontaneous
  Country: CA (occurrence: CA)
  Receive Date: 20130618
  Receipt Date: 20250821
  Transmission Date: 20251021
  Serious: Yes (Life-Threatening, Hospitalization, Disabling, Other)
  Sender: ALEXION PHARMACEUTICALS
  Company Number: 2013SE40869

PATIENT
  Age: 32 Year
  Sex: Female

DRUGS (18)
  1. BUPIVACAINE [Suspect]
     Active Substance: BUPIVACAINE
     Indication: Spinal anaesthesia
  2. BUPIVACAINE [Suspect]
     Active Substance: BUPIVACAINE
  3. BUPIVACAINE [Suspect]
     Active Substance: BUPIVACAINE
  4. BUPIVACAINE [Suspect]
     Active Substance: BUPIVACAINE
  5. FENTANYL [Suspect]
     Active Substance: FENTANYL
     Indication: Spinal anaesthesia
  6. FENTANYL [Suspect]
     Active Substance: FENTANYL
     Indication: Caesarean section
     Route: 065
  7. MORPHINE [Suspect]
     Active Substance: MORPHINE
     Indication: Spinal anaesthesia
  8. PHENYLEPHRINE [Concomitant]
     Active Substance: PHENYLEPHRINE
     Indication: Spinal anaesthesia
  9. PHENYLEPHRINE [Concomitant]
     Active Substance: PHENYLEPHRINE
     Indication: Caesarean section
  10. PHENYLEPHRINE [Concomitant]
     Active Substance: PHENYLEPHRINE
     Route: 065
  11. PHENYLEPHRINE [Concomitant]
     Active Substance: PHENYLEPHRINE
  12. ATROPINE [Suspect]
     Active Substance: ATROPINE
     Indication: Product used for unknown indication
  13. ATROPINE [Suspect]
     Active Substance: ATROPINE
     Indication: Hypotension
     Route: 065
  14. ATROPINE [Suspect]
     Active Substance: ATROPINE
     Indication: Bradycardia
  15. EPHEDRINE [Suspect]
     Active Substance: EPHEDRINE
     Indication: Product used for unknown indication
  16. EPHEDRINE [Suspect]
     Active Substance: EPHEDRINE
     Indication: Hypotension
  17. EPHEDRINE [Suspect]
     Active Substance: EPHEDRINE
     Indication: Bradycardia
     Route: 065
  18. EPHEDRINE [Suspect]
     Active Substance: EPHEDRINE
     Indication: Spinal anaesthesia
     Route: 065

REACTIONS (8)
  - Spinal cord ischaemia [Unknown]
  - Monoplegia [Not Recovered/Not Resolved]
  - Bradycardia [Recovered/Resolved]
  - Hypotension [Recovered/Resolved]
  - Maternal exposure during pregnancy [Not Recovered/Not Resolved]
  - Neuralgia [Recovered/Resolved]
  - Anterior spinal artery syndrome [Recovered/Resolved]
  - Rhythm idioventricular [Recovered/Resolved]
